FAERS Safety Report 6121323-4 (Version None)
Quarter: 2009Q1

REPORT INFORMATION
  Report Type: 
  Country: None (occurrence: None)
  Receive Date: 20090312
  Receipt Date: 20090312
  Transmission Date: 20090719
  Serious: No
  Sender: FDA-Public Use
  Company Number: None

PATIENT
  Sex: Female
  Weight: 62.5964 kg

DRUGS (5)
  1. VALPROIC ACID [Suspect]
     Indication: EPILEPSY
     Dosage: 125 MG BID PO
     Route: 048
     Dates: start: 20090226, end: 20090228
  2. ZONISAMIDE [Concomitant]
  3. SEROQUEL [Concomitant]
  4. ZOLOFT [Concomitant]
  5. COGENTIN [Concomitant]

REACTIONS (3)
  - PRODUCT QUALITY ISSUE [None]
  - RASH ERYTHEMATOUS [None]
  - RASH PRURITIC [None]
